FAERS Safety Report 22251633 (Version 2)
Quarter: 2023Q2

REPORT INFORMATION
  Report Type: Spontaneous
  Country: FR (occurrence: FR)
  Receive Date: 20230425
  Receipt Date: 20230503
  Transmission Date: 20230721
  Serious: Yes (Life-Threatening, Other)
  Sender: FDA-Public Use
  Company Number: FR-PFIZER INC-PV202300073137

PATIENT

DRUGS (6)
  1. CEFTAZIDIME [Suspect]
     Active Substance: CEFTAZIDIME
     Indication: Aplasia
     Dosage: 3 G, DAILY
  2. VANCOMYCIN HYDROCHLORIDE [Suspect]
     Active Substance: VANCOMYCIN HYDROCHLORIDE
     Indication: Aplasia
     Dosage: 1.5 G, DAILY
  3. COLISTIMETHATE SODIUM [Concomitant]
     Active Substance: COLISTIMETHATE SODIUM
     Indication: Gastrointestinal disorder
     Dosage: 6000000 IU, DAILY
  4. FLUCONAZOLE [Concomitant]
     Active Substance: FLUCONAZOLE
     Indication: Gastrointestinal disorder
     Dosage: 100 MG, DAILY
     Route: 048
  5. IMIPENEM [Concomitant]
     Active Substance: IMIPENEM
     Dosage: 3 G, DAILY
  6. ERYTHROMYCIN [Concomitant]
     Active Substance: ERYTHROMYCIN
     Dosage: 3 G, DAILY

REACTIONS (3)
  - Drug resistance [Unknown]
  - Lactobacillus infection [Unknown]
  - Sepsis [Unknown]
